FAERS Safety Report 7725208-9 (Version None)
Quarter: 2011Q3

REPORT INFORMATION
  Report Type: 
  Country: None (occurrence: None)
  Receive Date: 20110901
  Receipt Date: 20110825
  Transmission Date: 20111222
  Serious: Yes (Other)
  Sender: FDA-Public Use
  Company Number: US-MPIJNJ-2011-03879

PATIENT

DRUGS (3)
  1. RITUXIMAB [Suspect]
     Indication: KIDNEY TRANSPLANT REJECTION
     Dosage: UNK
  2. IMMUNE GLOBULIN NOS [Concomitant]
     Indication: PRODUCT USED FOR UNKNOWN INDICATION
     Route: 042
  3. VELCADE [Suspect]
     Indication: KIDNEY TRANSPLANT REJECTION
     Dosage: 1.3 MG/M2, CYCLIC
     Route: 040

REACTIONS (1)
  - OESOPHAGITIS [None]
